FAERS Safety Report 13749275 (Version 1)
Quarter: 2017Q3

REPORT INFORMATION
  Report Type: Spontaneous
  Country: US (occurrence: US)
  Receive Date: 20170713
  Receipt Date: 20170713
  Transmission Date: 20171127
  Serious: No
  Sender: FDA-Public Use
  Company Number: US-GLAXOSMITHKLINE-US2017107457

PATIENT
  Sex: Male

DRUGS (4)
  1. FIBER [Concomitant]
     Active Substance: PSYLLIUM HUSK
  2. BREO ELLIPTA [Suspect]
     Active Substance: FLUTICASONE FUROATE\VILANTEROL TRIFENATATE
     Indication: ASTHMA
     Dosage: 1 PUFF(S), QD
     Route: 055
     Dates: start: 201706
  3. ADVIL [Concomitant]
     Active Substance: IBUPROFEN
  4. MIRALAX [Concomitant]
     Active Substance: POLYETHYLENE GLYCOL 3350

REACTIONS (4)
  - Dyspnoea [Unknown]
  - Dysphonia [Unknown]
  - Throat irritation [Unknown]
  - Therapeutic response decreased [Unknown]
